FAERS Safety Report 6727207-2 (Version None)
Quarter: 2010Q2

REPORT INFORMATION
  Report Type: 
  Country: None (occurrence: None)
  Receive Date: 20100517
  Receipt Date: 20100508
  Transmission Date: 20101027
  Serious: Yes (Hospitalization)
  Sender: FDA-Public Use
  Company Number: ES-SHIRE-SPV1-2010-00761

PATIENT
  Sex: Male
  Weight: 65.5 kg

DRUGS (13)
  1. FOSRENOL [Suspect]
     Indication: HYPERPHOSPHATAEMIA
     Dosage: 1000 MG, 3X/DAY:TID
     Route: 048
     Dates: start: 20080422, end: 20080719
  2. FOSRENOL [Suspect]
     Indication: HYPERPARATHYROIDISM SECONDARY
     Dosage: 750 MG, 3X/DAY:TID
     Route: 048
     Dates: start: 20080324, end: 20080422
  3. INSULIN [Concomitant]
     Indication: DIABETES MELLITUS
     Route: 058
  4. ENALAPRIL MALEATE [Concomitant]
     Indication: HYPERTENSION
     Dosage: 20 MG, 1X/DAY:QD
     Route: 048
     Dates: start: 20061202
  5. BISOPROLOL [Concomitant]
     Indication: HYPERTENSION
     Dosage: 5 MG, 1X/DAY:QD
     Route: 048
     Dates: start: 20061220, end: 20090822
  6. AMLODIPIN                          /00972401/ [Concomitant]
     Indication: HYPERTENSION
     Dosage: 10 MG, 1X/DAY:QD
     Route: 048
     Dates: start: 20070823
  7. DOXAZOSIN MESYLATE [Concomitant]
     Indication: HYPERTENSION
     Dosage: 4 MG, 1X/DAY:QD
     Route: 048
     Dates: start: 20070908, end: 20080913
  8. SEVELAMER [Concomitant]
     Indication: HYPERPHOSPHATAEMIA
     Dosage: 1600 MG, 3X/DAY:TID
     Route: 048
     Dates: start: 20080529
  9. CALCIUM ACETATE [Concomitant]
     Indication: HYPERPHOSPHATAEMIA
     Dosage: 500 MG, 2X/DAY:BID
     Route: 048
     Dates: start: 20071122
  10. CINACALCET [Concomitant]
     Indication: HYPERPARATHYROIDISM SECONDARY
     Dosage: 30 MG, 1X/DAY:QD
     Route: 048
     Dates: start: 20070717
  11. PARICALCITOL [Concomitant]
     Indication: HYPERPARATHYROIDISM SECONDARY
     Dosage: 3 UG, OTHER
     Dates: start: 20080529
  12. VENOFER [Concomitant]
     Indication: ANAEMIA
     Dosage: 50 MG, 1X/WEEK
     Dates: start: 20070920
  13. EPREX [Concomitant]
     Indication: ANAEMIA
     Dosage: 3000 IU, OTHER
     Dates: start: 20071220

REACTIONS (3)
  - DIVERTICULITIS [None]
  - ENTEROCOCCAL SEPSIS [None]
  - X-RAY ABNORMAL [None]
